FAERS Safety Report 9192229 (Version 4)
Quarter: 2013Q4

REPORT INFORMATION
  Report Type: Spontaneous
  Country: US (occurrence: None)
  Receive Date: 20120703
  Receipt Date: 20131226
  Transmission Date: 20140711
  Serious: Yes (Other)
  Sender: FDA-Public Use
  Company Number: PHEH2012US010947

PATIENT
  Age: 47 Year
  Sex: Female

DRUGS (6)
  1. GILENYA [Suspect]
     Indication: MULTIPLE SCLEROSIS
     Route: 048
     Dates: start: 20120525, end: 20120525
  2. ADDERALL (AMFETAMINE ASPARTATE, AMFETAMINE SULFATE, DEXAMFETAMINE SACCHARATE, DEXAMFETAMINE SULFATE) [Concomitant]
  3. WELLBUTRIN (BUPROPION HYDROCHLORIDE) [Concomitant]
  4. TOPAMAX (TOPIRAMATE) [Concomitant]
  5. VALIUM (DIAZEPAM) [Concomitant]
  6. LEXAPRO (ESCITALOPRAM OXALATE) [Concomitant]

REACTIONS (7)
  - Somnolence [None]
  - Nausea [None]
  - Headache [None]
  - Rhinorrhoea [None]
  - Fatigue [None]
  - Heart rate decreased [None]
  - Influenza [None]
